FAERS Safety Report 5445656-X (Version None)
Quarter: 2007Q3

REPORT INFORMATION
  Report Type: 
  Country: None (occurrence: None)
  Receive Date: 20070904
  Receipt Date: 20070824
  Transmission Date: 20080115
  Serious: Yes (Hospitalization)
  Sender: FDA-Public Use
  Company Number: 163-21880-07080306

PATIENT
  Age: 71 Year
  Sex: Male

DRUGS (2)
  1. REVLIMID [Suspect]
     Indication: MYELODYSPLASTIC SYNDROME
     Dosage: 25 MG, QD X 21 DAYS, ORAL;QD X 21 DAYS, ORAL
     Route: 048
     Dates: start: 20070621, end: 20070718
  2. REVLIMID [Suspect]
     Indication: MYELODYSPLASTIC SYNDROME
     Dosage: 25 MG, QD X 21 DAYS, ORAL;QD X 21 DAYS, ORAL
     Route: 048
     Dates: start: 20070804

REACTIONS (2)
  - STOMATITIS [None]
  - SWELLING FACE [None]
